FAERS Safety Report 12173979 (Version 1)
Quarter: 2016Q1

REPORT INFORMATION
  Report Type: Report from Study
  Country: US (occurrence: US)
  Receive Date: 20160314
  Receipt Date: 20160314
  Transmission Date: 20160526
  Serious: Yes (Other)
  Sender: FDA-Public Use
  Company Number: US-AMGEN-USASL2016029365

PATIENT
  Age: 63 Year
  Sex: Female

DRUGS (1)
  1. REPATHA [Suspect]
     Active Substance: EVOLOCUMAB
     Indication: HYPERLIPIDAEMIA
     Dosage: 140 MG, UNK
     Route: 065
     Dates: start: 20160222

REACTIONS (10)
  - Diplopia [Unknown]
  - Nausea [Unknown]
  - Dizziness [Unknown]
  - Dysphagia [Unknown]
  - Dyspnoea [Unknown]
  - Skin lesion [Unknown]
  - Pruritus [Unknown]
  - Injection site pain [Unknown]
  - Vertigo [Unknown]
  - Sensation of foreign body [Unknown]
